APPROVED DRUG PRODUCT: TPOXX
Active Ingredient: TECOVIRIMAT
Strength: 200MG/20ML (10MG/ML)
Dosage Form/Route: SOLUTION;INTRAVENOUS
Application: N214518 | Product #001
Applicant: SIGA TECHNOLOGIES INC
Approved: May 18, 2022 | RLD: Yes | RS: Yes | Type: RX

PATENTS:
Patent 7737168 | Expires: Sep 4, 2031
Patent 9907859 | Expires: Aug 2, 2031
Patent 10576165 | Expires: Aug 2, 2031
Patent 8039504 | Expires: Jul 23, 2027
Patent 9233097 | Expires: Aug 2, 2031